FAERS Safety Report 23844581 (Version 1)
Quarter: 2024Q2

REPORT INFORMATION
  Report Type: Spontaneous
  Country: IR (occurrence: IR)
  Receive Date: 20240511
  Receipt Date: 20240511
  Transmission Date: 20240716
  Serious: Yes (Death, Other)
  Sender: FDA-Public Use
  Company Number: IR-Nexus Pharma-000265

PATIENT
  Age: 50 Year
  Sex: Male

DRUGS (7)
  1. COLISTIMETHATE SODIUM [Suspect]
     Active Substance: COLISTIMETHATE SODIUM
     Indication: Klebsiella infection
  2. TIGECYCLINE [Suspect]
     Active Substance: TIGECYCLINE
     Indication: Klebsiella infection
  3. FLUCONAZOLE [Suspect]
     Active Substance: FLUCONAZOLE
     Indication: Fungal infection
  4. ACYCLOVIR [Suspect]
     Active Substance: ACYCLOVIR
     Indication: Herpes zoster
  5. IMIPENEM [Suspect]
     Active Substance: IMIPENEM
     Indication: Evidence based treatment
  6. MEROPENEM [Concomitant]
     Active Substance: MEROPENEM
     Indication: Herpes zoster
  7. DOXYCYCLINE [Concomitant]
     Active Substance: DOXYCYCLINE
     Indication: Klebsiella infection

REACTIONS (2)
  - Sepsis [Fatal]
  - Drug resistance [Unknown]
